FAERS Safety Report 8889300 (Version 1)
Quarter: 2012Q4

REPORT INFORMATION
  Report Type: 
  Country: US (occurrence: US)
  Receive Date: 20121106
  Receipt Date: 20121106
  Transmission Date: 20130627
  Serious: Yes (Disabling)
  Sender: FDA-Public Use
  Company Number: US-009507513-1211USA000274

PATIENT
  Sex: Female

DRUGS (1)
  1. SAPHRIS [Suspect]
     Dosage: 1 standard package bottle of 30
     Route: 060

REACTIONS (5)
  - Accidental exposure to product [Unknown]
  - Dizziness [Unknown]
  - Dysstasia [Unknown]
  - Wrong drug administered [Unknown]
  - Accidental exposure to product [Unknown]
